FAERS Safety Report 7141378-8 (Version None)
Quarter: 2010Q4

REPORT INFORMATION
  Report Type: 
  Country: None (occurrence: None)
  Receive Date: 20101207
  Receipt Date: 20101129
  Transmission Date: 20110411
  Serious: Yes (Hospitalization)
  Sender: FDA-Public Use
  Company Number: US-ELI_LILLY_AND_COMPANY-US201011007297

PATIENT
  Sex: Male
  Weight: 99.773 kg

DRUGS (2)
  1. BYETTA [Suspect]
     Indication: TYPE 2 DIABETES MELLITUS
     Dosage: UNK, 2/D
     Route: 058
  2. METFORMIN [Concomitant]
     Indication: TYPE 2 DIABETES MELLITUS
     Dosage: 1000 MG, UNK
     Route: 048

REACTIONS (4)
  - ABDOMINAL PAIN [None]
  - NAUSEA [None]
  - URINARY RETENTION [None]
  - VOMITING [None]
